FAERS Safety Report 15075394 (Version 1)
Quarter: 2018Q2

REPORT INFORMATION
  Report Type: Spontaneous
  Country: US (occurrence: US)
  Receive Date: 20180627
  Receipt Date: 20180627
  Transmission Date: 20180711
  Serious: Yes (Hospitalization)
  Sender: FDA-Public Use
  Company Number: US-SAOL THERAPEUTICS-2018SAO00377

PATIENT
  Sex: Male
  Weight: 79.37 kg

DRUGS (1)
  1. LIORESAL [Suspect]
     Active Substance: BACLOFEN
     Dosage: 131 ?G, \DAY
     Route: 037

REACTIONS (2)
  - Muscle spasticity [Recovered/Resolved]
  - Fall [Recovered/Resolved]
